FAERS Safety Report 4291067-2 (Version None)
Quarter: 2004Q1

REPORT INFORMATION
  Report Type: 
  Country: None (occurrence: None)
  Receive Date: 20040211
  Receipt Date: 20031103
  Transmission Date: 20041129
  Serious: No
  Sender: FDA-Public Use
  Company Number: US-GLAXOSMITHKLINE-A0432640A

PATIENT
  Age: 75 Year
  Sex: Female

DRUGS (2)
  1. PAXIL [Suspect]
     Dosage: 10MG PER DAY
     Route: 048
     Dates: start: 20030901
  2. CELEBREX [Concomitant]
     Indication: ARTHRITIS

REACTIONS (4)
  - AGGRESSION [None]
  - DEPRESSED MOOD [None]
  - EXCITABILITY [None]
  - NEGATIVISM [None]
